FAERS Safety Report 7763344-1 (Version None)
Quarter: 2011Q3

REPORT INFORMATION
  Report Type: 
  Country: None (occurrence: None)
  Receive Date: 20110920
  Receipt Date: 20110826
  Transmission Date: 20111222
  Serious: No
  Sender: FDA-Public Use
  Company Number: US-BAUSCH-2011BL005765

PATIENT
  Sex: Male

DRUGS (2)
  1. BESIVANCE [Suspect]
     Indication: PRODUCT USED FOR UNKNOWN INDICATION
     Route: 047
  2. UROXATRAL [Interacting]
     Indication: PRODUCT USED FOR UNKNOWN INDICATION
     Route: 048

REACTIONS (1)
  - BLOOD URINE PRESENT [None]
